FAERS Safety Report 13805846 (Version 1)
Quarter: 2017Q3

REPORT INFORMATION
  Report Type: Spontaneous
  Country: US (occurrence: US)
  Receive Date: 20170728
  Receipt Date: 20170728
  Transmission Date: 20171127
  Serious: No
  Sender: FDA-Public Use
  Company Number: GXBR2017US001090

PATIENT
  Sex: Female
  Weight: 113.38 kg

DRUGS (1)
  1. TIMOLOL GFS [Suspect]
     Active Substance: TIMOLOL MALEATE
     Indication: INTRAOCULAR PRESSURE TEST
     Dosage: 1 GTT, BOTH EYES QHS
     Route: 047
     Dates: start: 20170309

REACTIONS (2)
  - Ocular discomfort [Not Recovered/Not Resolved]
  - Eyelid oedema [Not Recovered/Not Resolved]
